FAERS Safety Report 17801640 (Version 3)
Quarter: 2022Q3

REPORT INFORMATION
  Report Type: Other
  Country: US (occurrence: None)
  Receive Date: 20200519
  Receipt Date: 20220921
  Transmission Date: 20221027
  Serious: Yes (Other)
  Sender: FDA-Public Use
  Company Number: US-ROCHE-2600066

PATIENT
  Age: 61 Year
  Sex: Male
  Weight: 74.456 kg

DRUGS (4)
  1. OCREVUS [Suspect]
     Active Substance: OCRELIZUMAB
     Indication: Relapsing-remitting multiple sclerosis
     Dosage: ONGOING: YES, DATE OF TREATMENT: 12-SEP-2019 25-SEP-2019 30-APR-2020 28-OCT-2020 15-APR-2021, 08/JUN
     Route: 042
     Dates: start: 20190912
  2. LYRICA [Concomitant]
     Active Substance: PREGABALIN
     Dosage: 6 CAPS/DAILY, INCREASE 8/DAILY, WEEKEND OFF
  3. NUCYNTA [Concomitant]
     Active Substance: TAPENTADOL HYDROCHLORIDE
  4. PAXLOVID [Concomitant]
     Active Substance: NIRMATRELVIR\RITONAVIR

REACTIONS (11)
  - Pneumonia [Recovered/Resolved]
  - Labyrinthitis [Recovered/Resolved]
  - Immunodeficiency [Unknown]
  - Neuralgia [Not Recovered/Not Resolved]
  - Hypoaesthesia [Recovered/Resolved]
  - Lip swelling [Recovered/Resolved]
  - Upper respiratory tract infection [Recovered/Resolved]
  - Throat irritation [Recovered/Resolved]
  - Gait disturbance [Not Recovered/Not Resolved]
  - COVID-19 [Not Recovered/Not Resolved]
  - Cough [Recovered/Resolved]

NARRATIVE: CASE EVENT DATE: 20191014
